FAERS Safety Report 7825697-5 (Version None)
Quarter: 2011Q4

REPORT INFORMATION
  Report Type: 
  Country: None (occurrence: None)
  Receive Date: 20111019
  Receipt Date: 20111012
  Transmission Date: 20120403
  Serious: Yes (Life-Threatening, Hospitalization)
  Sender: FDA-Public Use
  Company Number: GR-CELGENEUS-066-C5013-11091927

PATIENT
  Age: 59 Year
  Sex: Male
  Weight: 76 kg

DRUGS (6)
  1. DOCETAXEL [Suspect]
     Indication: PROSTATE CANCER
     Dosage: 143 MILLIGRAM
     Route: 041
     Dates: start: 20110519, end: 20110519
  2. LENALIDOMIDE [Suspect]
     Dosage: 25 MILLIGRAM
     Route: 048
     Dates: start: 20110901, end: 20110914
  3. DOCETAXEL [Suspect]
     Dosage: 143 MILLIGRAM
     Route: 041
     Dates: start: 20110901, end: 20110901
  4. PREDNISONE [Suspect]
     Indication: PROSTATE CANCER
     Dosage: 10 MILLIGRAM
     Route: 048
     Dates: start: 20110519
  5. PREDNISONE [Suspect]
     Dosage: 10 MILLIGRAM
     Route: 048
     Dates: start: 20110901, end: 20110923
  6. LENALIDOMIDE [Suspect]
     Indication: PROSTATE CANCER
     Dosage: 25 MILLIGRAM
     Route: 048
     Dates: start: 20110519, end: 20110601

REACTIONS (1)
  - PERICARDIAL EFFUSION [None]
